FAERS Safety Report 7515994-5 (Version None)
Quarter: 2011Q2

REPORT INFORMATION
  Report Type: 
  Country: None (occurrence: None)
  Receive Date: 20110601
  Receipt Date: 20110523
  Transmission Date: 20111010
  Serious: Yes (Hospitalization, Other)
  Sender: FDA-Public Use
  Company Number: US-BAYER-201040497NA

PATIENT
  Age: 15 Year
  Sex: Female
  Weight: 107 kg

DRUGS (8)
  1. AMOXICILLIN [Concomitant]
     Dosage: UNK
     Dates: start: 20040220
  2. FLAGYL [Concomitant]
     Dosage: UNK
     Dates: start: 20040220
  3. PEPCID AC [Concomitant]
  4. PEPTO BISMOL [Concomitant]
     Dosage: UNK
     Dates: start: 20040220
  5. TYLOX [Concomitant]
  6. YASMIN [Suspect]
     Indication: PRODUCT USED FOR UNKNOWN INDICATION
     Route: 048
     Dates: start: 20030101, end: 20050101
  7. RITALIN [Concomitant]
     Indication: ATTENTION DEFICIT/HYPERACTIVITY DISORDER
  8. CONCERTA [Concomitant]

REACTIONS (2)
  - CHOLECYSTITIS CHRONIC [None]
  - CHOLELITHIASIS [None]
